FAERS Safety Report 11444942 (Version 2)
Quarter: 2015Q4

REPORT INFORMATION
  Report Type: Report from Study
  Country: BR (occurrence: BR)
  Receive Date: 20150902
  Receipt Date: 20151012
  Transmission Date: 20160304
  Serious: Yes (Other)
  Sender: FDA-Public Use
  Company Number: PHHY2015BR104696

PATIENT
  Sex: Female
  Weight: 53 kg

DRUGS (1)
  1. ACLASTA [Suspect]
     Active Substance: ZOLEDRONIC ACID
     Indication: OSTEOPOROSIS
     Dosage: 1 DF, Q12MO
     Route: 065
     Dates: start: 20140826

REACTIONS (4)
  - Rheumatoid arthritis [Recovering/Resolving]
  - Pneumonia [Recovering/Resolving]
  - Spinal fracture [Recovered/Resolved]
  - Back pain [Recovered/Resolved]
